FAERS Safety Report 5974242-8 (Version None)
Quarter: 2008Q4

REPORT INFORMATION
  Report Type: 
  Country: None (occurrence: None)
  Receive Date: 20081201
  Receipt Date: 20081114
  Transmission Date: 20090506
  Serious: Yes (Hospitalization, Other)
  Sender: FDA-Public Use
  Company Number: JP-PFIZER INC-2008088715

PATIENT
  Age: 63 Year
  Sex: Male

DRUGS (2)
  1. NIFEDIPINE [Suspect]
     Route: 048
  2. DILTIAZEM HYDROCHLORIDE [Suspect]
     Indication: HYPERTENSION
     Route: 048

REACTIONS (5)
  - BUNDLE BRANCH BLOCK [None]
  - CARDIAC ARREST [None]
  - CONVULSION [None]
  - NODAL RHYTHM [None]
  - SHOCK [None]
